FAERS Safety Report 4570019-9 (Version None)
Quarter: 2005Q1

REPORT INFORMATION
  Report Type: 
  Country: None (occurrence: None)
  Receive Date: 20050204
  Receipt Date: 20050128
  Transmission Date: 20050727
  Serious: Yes (Hospitalization)
  Sender: FDA-Public Use
  Company Number: FR-BRISTOL-MYERS SQUIBB COMPANY-12840609

PATIENT
  Age: 64 Year
  Sex: Male

DRUGS (9)
  1. ZERIT [Suspect]
     Route: 048
     Dates: start: 20000614
  2. SUSTIVA [Suspect]
     Route: 048
     Dates: start: 20000614
  3. EPIVIR [Suspect]
     Route: 048
     Dates: start: 20000614
  4. PLAVIX [Concomitant]
     Dates: start: 20021101
  5. GLUCOPHAGE [Concomitant]
     Indication: DIABETES MELLITUS NON-INSULIN-DEPENDENT
  6. HEMI-DAONIL [Concomitant]
     Indication: DIABETES MELLITUS NON-INSULIN-DEPENDENT
  7. AMLODIPINE BESYLATE [Concomitant]
     Indication: HYPERTENSION
  8. COAPROVEL [Concomitant]
     Indication: HYPERTENSION
  9. PRAVASTATIN [Concomitant]
     Indication: DYSLIPIDAEMIA

REACTIONS (1)
  - CEREBROVASCULAR ACCIDENT [None]
